FAERS Safety Report 9028360 (Version 1)
Quarter: 2013Q1

REPORT INFORMATION
  Report Type: Spontaneous
  Country: US (occurrence: US)
  Receive Date: 20130124
  Receipt Date: 20130124
  Transmission Date: 20140127
  Serious: No
  Sender: FDA-Public Use
  Company Number: US-BAUSCH-BL-2012-000739

PATIENT
  Age: 67 Year
  Sex: Female
  Weight: 52.21 kg

DRUGS (1)
  1. ALAWAY [Suspect]
     Indication: EYE ALLERGY
     Dosage: 1 DROP IN EACH EYE ONCE DAILY
     Route: 047
     Dates: start: 20120826, end: 20120826

REACTIONS (2)
  - Somnolence [Recovered/Resolved]
  - Fatigue [Recovered/Resolved]
